FAERS Safety Report 12758107 (Version 1)
Quarter: 2016Q3

REPORT INFORMATION
  Report Type: Spontaneous
  Country: US (occurrence: US)
  Receive Date: 20160916
  Receipt Date: 20160916
  Transmission Date: 20161109
  Serious: Yes (Other)
  Sender: FDA-Public Use
  Company Number: None

PATIENT
  Age: 43 Year
  Sex: Female
  Weight: 63 kg

DRUGS (5)
  1. ALBUTEROL. [Concomitant]
     Active Substance: ALBUTEROL
  2. PULMICORT TURBUHALER [Concomitant]
     Active Substance: BUDESONIDE
  3. FISH OIL [Concomitant]
     Active Substance: FISH OIL
  4. PROBIOTICS [Concomitant]
     Active Substance: PROBIOTICS NOS
  5. VIIBRYD [Suspect]
     Active Substance: VILAZODONE HYDROCHLORIDE
     Indication: DEPRESSION
     Route: 048

REACTIONS (6)
  - Depression [None]
  - Affect lability [None]
  - Product quality issue [None]
  - Impatience [None]
  - Helplessness [None]
  - Drug effect decreased [None]

NARRATIVE: CASE EVENT DATE: 20160909
